FAERS Safety Report 16685097 (Version 2)
Quarter: 2019Q3

REPORT INFORMATION
  Report Type: Spontaneous
  Country: FR (occurrence: FR)
  Receive Date: 20190808
  Receipt Date: 20190809
  Transmission Date: 20191004
  Serious: Yes (Hospitalization, Disabling)
  Sender: FDA-Public Use
  Company Number: FR-TEVA-2019-FR-1090266

PATIENT
  Age: 62 Year
  Sex: Female
  Weight: 69 kg

DRUGS (1)
  1. TAMOXIFENE BASE [Suspect]
     Active Substance: TAMOXIFEN
     Indication: BREAST CANCER
     Dosage: 20 MILLIGRAM FOR EVERY 1DAYS
     Route: 048
     Dates: start: 201608, end: 201810

REACTIONS (1)
  - Rapidly progressive osteoarthritis [Not Recovered/Not Resolved]

NARRATIVE: CASE EVENT DATE: 201804
